FAERS Safety Report 5946555-7 (Version None)
Quarter: 2008Q4

REPORT INFORMATION
  Report Type: 
  Country: None (occurrence: None)
  Receive Date: 20081110
  Receipt Date: 20081105
  Transmission Date: 20090506
  Serious: Yes (Disabling, Other)
  Sender: FDA-Public Use
  Company Number: B0545539A

PATIENT
  Age: 60 Year
  Sex: Male

DRUGS (1)
  1. AVANDARYL [Suspect]
     Dosage: 6MG PER DAY
     Route: 048
     Dates: start: 20080401, end: 20081103

REACTIONS (1)
  - DIPLOPIA [None]
